FAERS Safety Report 8661812 (Version 3)
Quarter: 2012Q4

REPORT INFORMATION
  Report Type: 
  Country: FR (occurrence: FR)
  Receive Date: 20120712
  Receipt Date: 20120919
  Transmission Date: 20130627
  Serious: Yes (Hospitalization, Other)
  Sender: FDA-Public Use
  Company Number: FR-ELI_LILLY_AND_COMPANY-FR201207001378

PATIENT
  Age: 82 Year
  Sex: Female
  Weight: 63 kg

DRUGS (1)
  1. FORSTEO [Suspect]
     Indication: OSTEOPOROSIS
     Dosage: 20 ug, qd
     Route: 058
     Dates: start: 20120423, end: 20120618

REACTIONS (8)
  - Thrombocytopenia [Unknown]
  - Neutropenia [Unknown]
  - Hypogammaglobulinaemia [Unknown]
  - Lumbar vertebral fracture [Unknown]
  - Lumbar vertebral fracture [Unknown]
  - Lumbar vertebral fracture [Unknown]
  - Spinal fracture [Unknown]
  - Karyotype analysis abnormal [Unknown]
